FAERS Safety Report 25835936 (Version 1)
Quarter: 2025Q3

REPORT INFORMATION
  Report Type: Spontaneous
  Country: CN (occurrence: CN)
  Receive Date: 20250923
  Receipt Date: 20250923
  Transmission Date: 20251021
  Serious: Yes (Other)
  Sender: NOVARTIS
  Company Number: CN-002147023-NVSC2025CN142242

PATIENT
  Age: 54 Year
  Sex: Female
  Weight: 61.5 kg

DRUGS (3)
  1. RIBOCICLIB [Suspect]
     Active Substance: RIBOCICLIB
     Indication: Breast cancer
     Dosage: 400 MG, QD (WITH 3 WEEKS OF MEDICATION AND ONE WEEK WITHDRAWAL)
     Route: 048
     Dates: start: 20250730, end: 20250820
  2. LETROZOLE [Suspect]
     Active Substance: LETROZOLE
     Indication: Breast cancer
     Dosage: 2.5 MG, QD
     Route: 048
     Dates: start: 20250730, end: 20250829
  3. GOSERELIN [Suspect]
     Active Substance: GOSERELIN
     Indication: Breast cancer
     Dosage: 3.6 MG, 28D) (SUSTAINED-RELEASE DEPOT)
     Route: 058
     Dates: start: 20250730, end: 20250730

REACTIONS (1)
  - Myelosuppression [Not Recovered/Not Resolved]

NARRATIVE: CASE EVENT DATE: 20250827
